FAERS Safety Report 24017457 (Version 1)
Quarter: 2024Q2

REPORT INFORMATION
  Report Type: Spontaneous
  Country: US (occurrence: US)
  Receive Date: 20240627
  Receipt Date: 20240627
  Transmission Date: 20240716
  Serious: No
  Sender: FDA-Public Use
  Company Number: US-ROCHE-10000009126

PATIENT
  Age: 19 Year
  Sex: Male

DRUGS (1)
  1. XOLAIR [Suspect]
     Active Substance: OMALIZUMAB
     Indication: Food allergy
     Dosage: XOLAIR 150MG ONCE EVERY 4 WEEKS;?ONGOING
     Route: 065
     Dates: start: 202405

REACTIONS (1)
  - Rash [Not Recovered/Not Resolved]
